FAERS Safety Report 9162370 (Version 3)
Quarter: 2013Q2

REPORT INFORMATION
  Report Type: Spontaneous
  Country: US (occurrence: US)
  Receive Date: 20130314
  Receipt Date: 20130416
  Transmission Date: 20140414
  Serious: Yes (Death, Hospitalization)
  Sender: FDA-Public Use
  Company Number: US-ASTELLAS-2013US002726

PATIENT
  Sex: Male
  Weight: 82 kg

DRUGS (3)
  1. XTANDI [Suspect]
     Indication: PROSTATE CANCER
     Dosage: 160 MG, TOTAL DOSE
     Route: 048
     Dates: start: 20130226, end: 20130226
  2. NORVASC [Concomitant]
     Indication: HYPERTENSION
     Dosage: 10 MG, UID/QD
     Route: 048
  3. OXYCODONE [Concomitant]
     Indication: PAIN
     Dosage: 5 MG, PRN
     Route: 048

REACTIONS (3)
  - Hepatic failure [Fatal]
  - Disease progression [Unknown]
  - Urinary bladder haemorrhage [Unknown]
